FAERS Safety Report 6275917-6 (Version None)
Quarter: 2009Q3

REPORT INFORMATION
  Report Type: 
  Country: None (occurrence: None)
  Receive Date: 20090720
  Receipt Date: 20090702
  Transmission Date: 20100115
  Serious: Yes (Hospitalization)
  Sender: FDA-Public Use
  Company Number: 2009AL004421

PATIENT
  Age: 71 Year
  Sex: Male
  Weight: 83.0083 kg

DRUGS (14)
  1. DIGOXIN [Suspect]
     Dosage: 0.125 MG DAILY, PO
     Route: 048
  2. ASPIRIN [Concomitant]
  3. METFORMIN [Concomitant]
  4. PLAVIX [Concomitant]
  5. AVODART [Concomitant]
  6. NEXIUM [Concomitant]
  7. FUROSEMIDE [Concomitant]
  8. GLIPIZIDE [Concomitant]
  9. INSULIN [Concomitant]
  10. METOPROLOL TARTRATE [Concomitant]
  11. POTASSIUM CHLORIDE [Concomitant]
  12. ZOCOR [Concomitant]
  13. FLOMAX [Concomitant]
  14. THEOPHYLLINE [Concomitant]

REACTIONS (11)
  - ABDOMINAL PAIN [None]
  - ASTHENIA [None]
  - BACK PAIN [None]
  - BLOOD GLUCOSE INCREASED [None]
  - DECREASED APPETITE [None]
  - DIARRHOEA [None]
  - NASAL CONGESTION [None]
  - OROPHARYNGEAL PAIN [None]
  - PULMONARY EMBOLISM [None]
  - TRANSIENT ISCHAEMIC ATTACK [None]
  - WEIGHT DECREASED [None]
